FAERS Safety Report 24987395 (Version 1)
Quarter: 2025Q1

REPORT INFORMATION
  Report Type: Other
  Country: US (occurrence: US)
  Receive Date: 20250219
  Receipt Date: 20250219
  Transmission Date: 20250408
  Serious: Yes (Other)
  Sender: CREEKWOOD PHARMACEUTICALS LLC
  Company Number: US-Creekwood Pharmaceuticals LLC-2171364

PATIENT
  Age: 73 Year
  Sex: Female

DRUGS (2)
  1. HYDROXYCHLOROQUINE SULFATE [Suspect]
     Active Substance: HYDROXYCHLOROQUINE SULFATE
     Indication: Lichen planus
  2. HYDROXYCHLOROQUINE SULFATE [Suspect]
     Active Substance: HYDROXYCHLOROQUINE SULFATE
     Indication: Rheumatoid arthritis

REACTIONS (5)
  - Retinal degeneration [Not Recovered/Not Resolved]
  - Product use in unapproved indication [Unknown]
  - Maculopathy [Recovering/Resolving]
  - Retinal toxicity [Recovering/Resolving]
  - Cystoid macular oedema [Recovering/Resolving]
